FAERS Safety Report 4382704-2 (Version None)
Quarter: 2004Q2

REPORT INFORMATION
  Report Type: 
  Country: None (occurrence: None)
  Receive Date: 20040617
  Receipt Date: 20040601
  Transmission Date: 20050107
  Serious: Yes (Hospitalization, Other)
  Sender: FDA-Public Use
  Company Number: 2003004038

PATIENT
  Age: 44 Year
  Sex: Female
  Weight: 85.2762 kg

DRUGS (41)
  1. LIPITOR [Suspect]
     Indication: HYPERLIPIDAEMIA
     Dosage: 20 MG
     Dates: start: 19980116, end: 20010910
  2. QUETIAPINE FUMARATE (QUETIAPINE FUMARATE) [Suspect]
  3. ROFECOXIB [Suspect]
     Indication: ILL-DEFINED DISORDER
     Dates: end: 19990101
  4. AZITHROMYCIN [Concomitant]
  5. VICODIN [Concomitant]
  6. SERTRALINE HCL [Concomitant]
  7. TORSEMIDE [Concomitant]
  8. POTASSIUM CHLORIDE [Concomitant]
  9. SALBUTAMOL (SALBUTAMOL) [Concomitant]
  10. CHROMAGEN (ASCORBIC ACID, CYANOCOBALAMIN, FERROUS FUMARATE, STOMACH DE [Concomitant]
  11. OMEPRAZOLE [Concomitant]
  12. CONJUGATED ESTROGENS [Concomitant]
  13. BUSPIRONE HCL [Concomitant]
  14. CITALOPRAM HYDROBROMIDE (CITALOPRAM HYDROBROMIDE) [Concomitant]
  15. BUPROPION HYDROCHLORIDE [Concomitant]
  16. CLONAZEPAM [Concomitant]
  17. PREDNISONE TAB [Concomitant]
  18. ESTRATEST HS (METHYLTESTOSTERONE, ESTROGENS ESTERIFIED) [Concomitant]
  19. RANITIDINE [Concomitant]
  20. FUROSEMIDE [Concomitant]
  21. GABAPENTIN [Concomitant]
  22. METAXALONE [Concomitant]
  23. VALACICLOVIR HYDROCHLORIDE (VALACICLOVIR HYDROCHLORIDE) [Concomitant]
  24. DIAZEPAM [Concomitant]
  25. LIBRAX [Concomitant]
  26. PSEUDOEPHEDRINE HCL [Concomitant]
  27. METRONIDAZOLE [Concomitant]
  28. DICYCLOVERINE (DICYCLOVERINE) [Concomitant]
  29. CLARITHROMYCIN [Concomitant]
  30. ESTRATES HS (METHYLTESTOSTERONE, ESTROGENS ESTERIFIED) [Concomitant]
  31. ALPRAZOLAM [Concomitant]
  32. THEOPHYLLINE [Concomitant]
  33. KETOCONAZOLE [Concomitant]
  34. HISTEX HC (PSEUDOEPHEDRINE HYDROCHLORIDE, HYDROCODONE BITARTRATE, CARB [Concomitant]
  35. GUAIFENESIN (GUAIFENESIN) [Concomitant]
  36. COMBIVENT [Concomitant]
  37. LANSOPRAZOLE [Concomitant]
  38. FEXOFENADINE HYDROCHLORIDE [Concomitant]
  39. ORLISTAT (ORLISTAT) [Concomitant]
  40. ARTHROTEC [Concomitant]
  41. AEROBID-M (FLUNISOLIDE, MENTHOL) [Concomitant]

REACTIONS (46)
  - ADENOMA BENIGN [None]
  - ANXIETY [None]
  - CANDIDIASIS [None]
  - CERVICAL MYELOPATHY [None]
  - CHROMATURIA [None]
  - COUGH [None]
  - DIPLOPIA [None]
  - DIVERTICULITIS [None]
  - DRY SKIN [None]
  - DYSPHAGIA [None]
  - DYSURIA [None]
  - ECONOMIC PROBLEM [None]
  - EMOTIONAL DISTRESS [None]
  - FALL [None]
  - FIBROMYALGIA [None]
  - FUNGAL CYSTITIS [None]
  - GENITAL ULCERATION [None]
  - HERPES SIMPLEX [None]
  - HYDRONEPHROSIS [None]
  - HYPERTENSION [None]
  - HYPOGLYCAEMIA [None]
  - HYPOKALAEMIA [None]
  - INCREASED APPETITE [None]
  - INFLAMMATION [None]
  - INSOMNIA [None]
  - IRRITABLE BOWEL SYNDROME [None]
  - MYOSITIS [None]
  - NEURALGIA [None]
  - NEUROPATHY [None]
  - OEDEMA [None]
  - OSTEOPETROSIS [None]
  - PALPITATIONS [None]
  - PRURITUS [None]
  - PSYCHOMOTOR HYPERACTIVITY [None]
  - RASH [None]
  - RESPIRATORY DISORDER [None]
  - RHABDOMYOLYSIS [None]
  - RHINITIS ALLERGIC [None]
  - SPINAL CORD DISORDER [None]
  - STRESS INCONTINENCE [None]
  - TEMPERATURE INTOLERANCE [None]
  - THIRST [None]
  - URINARY TRACT INFECTION [None]
  - WEIGHT INCREASED [None]
  - WHITE BLOOD CELL COUNT INCREASED [None]
  - XEROSIS [None]
